FAERS Safety Report 9348326 (Version 1)
Quarter: 2013Q2

REPORT INFORMATION
  Report Type: Spontaneous
  Country: US (occurrence: US)
  Receive Date: 20130614
  Receipt Date: 20130614
  Transmission Date: 20140414
  Serious: Yes (Hospitalization, Other)
  Sender: FDA-Public Use
  Company Number: US-009507513-1306USA004358

PATIENT
  Sex: Female

DRUGS (1)
  1. NUVARING [Suspect]
     Dosage: UNK
     Route: 067
     Dates: start: 2009, end: 20120606

REACTIONS (5)
  - Cerebrovascular accident [Unknown]
  - Cerebral venous thrombosis [Unknown]
  - Pain [Unknown]
  - Nausea [Unknown]
  - Migraine [Unknown]
